FAERS Safety Report 8513920-3 (Version None)
Quarter: 2012Q3

REPORT INFORMATION
  Report Type: 
  Country: None (occurrence: None)
  Receive Date: 20120705
  Receipt Date: 20120626
  Transmission Date: 20120928
  Serious: Yes (Hospitalization, Other)
  Sender: FDA-Public Use
  Company Number: ACO_30766_2012

PATIENT
  Age: 47 Year
  Sex: Female

DRUGS (12)
  1. CLONIDINE [Suspect]
     Indication: HYPERTENSION
     Dosage: UNK
     Dates: start: 20111201
  2. BETASERON [Concomitant]
  3. LISINOIPRIL (LISINOPRIL) [Concomitant]
  4. OMEPRAZOLE [Concomitant]
  5. XANAX [Concomitant]
  6. PAXIL [Concomitant]
  7. GILENYA [Suspect]
     Indication: PRODUCT USED FOR UNKNOWN INDICATION
  8. COPAXONE [Suspect]
     Indication: PRODUCT USED FOR UNKNOWN INDICATION
     Dosage: UNK
     Dates: start: 20120605
  9. ZITHROMAX [Suspect]
     Indication: PRODUCT USED FOR UNKNOWN INDICATION
     Dosage: UNK
     Dates: start: 20111201
  10. ESTRADIOL [Concomitant]
  11. AMPYRA [Suspect]
     Indication: PRODUCT USED FOR UNKNOWN INDICATION
     Dosage: 10 MG, BID
     Dates: start: 20111101
  12. TRAZODONE HCL [Concomitant]

REACTIONS (14)
  - ENCEPHALOPATHY [None]
  - CONFUSIONAL STATE [None]
  - CONVULSION [None]
  - DRUG EFFECT DECREASED [None]
  - INJECTION SITE PAIN [None]
  - HEADACHE [None]
  - ERYTHEMA [None]
  - HYPERTENSION [None]
  - INAPPROPRIATE SCHEDULE OF DRUG ADMINISTRATION [None]
  - MULTIPLE SCLEROSIS RELAPSE [None]
  - OEDEMA [None]
  - ADVERSE DRUG REACTION [None]
  - DRUG HYPERSENSITIVITY [None]
  - ELECTROENCEPHALOGRAM ABNORMAL [None]
